FAERS Safety Report 6283243-4 (Version None)
Quarter: 2009Q3

REPORT INFORMATION
  Report Type: 
  Country: None (occurrence: None)
  Receive Date: 20090722
  Receipt Date: 20090722
  Transmission Date: 20100115
  Serious: No
  Sender: FDA-Public Use
  Company Number: None

PATIENT
  Sex: Female
  Weight: 78.0187 kg

DRUGS (1)
  1. RYZOLT [Suspect]
     Indication: PAIN IN EXTREMITY
     Dosage: 200 MG ONLY 1
     Dates: start: 20090708

REACTIONS (6)
  - COLD SWEAT [None]
  - DIZZINESS [None]
  - FEELING ABNORMAL [None]
  - NAUSEA [None]
  - RETCHING [None]
  - VOMITING [None]
